FAERS Safety Report 10527223 (Version 1)
Quarter: 2014Q4

REPORT INFORMATION
  Report Type: Spontaneous
  Country: US (occurrence: None)
  Receive Date: 20141017
  Receipt Date: 20141017
  Transmission Date: 20150528
  Serious: No
  Sender: FDA-Public Use
  Company Number: None

PATIENT
  Age: 60 Year
  Sex: Female
  Weight: 65 kg

DRUGS (5)
  1. NORCO [Concomitant]
     Active Substance: ACETAMINOPHEN\HYDROCODONE BITARTRATE
  2. XARELTO [Suspect]
     Active Substance: RIVAROXABAN
     Route: 048
     Dates: start: 20140906, end: 20140923
  3. FISH OIL [Concomitant]
     Active Substance: FISH OIL
  4. IBUPROFEN. [Concomitant]
     Active Substance: IBUPROFEN
  5. MULTIVITAMIN [Concomitant]
     Active Substance: VITAMINS

REACTIONS (6)
  - Visual impairment [None]
  - Headache [None]
  - Blood glucose increased [None]
  - Mental impairment [None]
  - Skin wrinkling [None]
  - Epistaxis [None]

NARRATIVE: CASE EVENT DATE: 20140919
